FAERS Safety Report 16993945 (Version 5)
Quarter: 2019Q4

REPORT INFORMATION
  Report Type: Report from Study
  Country: SG (occurrence: SG)
  Receive Date: 20191105
  Receipt Date: 20191230
  Transmission Date: 20200122
  Serious: Yes (Other)
  Sender: FDA-Public Use
  Company Number: NVSC2019SG015203

PATIENT
  Age: 64 Year
  Sex: Male
  Weight: 75.4 kg

DRUGS (4)
  1. TRAMETINIB [Suspect]
     Active Substance: TRAMETINIB
     Indication: ADENOCARCINOMA PANCREAS
     Dosage: 1.5 MG, QD
     Route: 048
     Dates: start: 20191119
  2. RUXOLITINIB [Suspect]
     Active Substance: RUXOLITINIB
     Indication: COLORECTAL CANCER
     Dosage: 15 MG, BID
     Route: 065
     Dates: start: 20190924, end: 20191104
  3. TRAMETINIB [Suspect]
     Active Substance: TRAMETINIB
     Indication: COLORECTAL CANCER
     Dosage: 2 MG, QD
     Route: 048
     Dates: start: 20190910, end: 20191104
  4. RUXOLITINIB [Suspect]
     Active Substance: RUXOLITINIB
     Indication: ADENOCARCINOMA PANCREAS
     Dosage: 10 MG, BID
     Route: 048
     Dates: start: 20191119

REACTIONS (1)
  - Detachment of retinal pigment epithelium [Recovered/Resolved]

NARRATIVE: CASE EVENT DATE: 20191021
